FAERS Safety Report 7014786-3 (Version None)
Quarter: 2010Q3

REPORT INFORMATION
  Report Type: 
  Country: None (occurrence: None)
  Receive Date: 20100927
  Receipt Date: 20100915
  Transmission Date: 20110219
  Serious: Yes (Hospitalization)
  Sender: FDA-Public Use
  Company Number: PHHY2010US60494

PATIENT
  Sex: Female

DRUGS (11)
  1. TEKTURNA HCT [Suspect]
  2. TEKTURNA [Suspect]
     Dosage: UNK
  3. DIOVAN [Suspect]
     Dosage: 80 MG, UNK
  4. DIOVAN [Suspect]
     Dosage: 320 MG, UNK
  5. CELEBREX [Concomitant]
  6. LASIX [Concomitant]
  7. LEVOTHYROXINE SODIUM [Concomitant]
  8. PAXIL [Concomitant]
  9. FUROSEMIDE [Concomitant]
  10. CARVEDILOL [Concomitant]
  11. VALTURNA [Concomitant]

REACTIONS (5)
  - BLOOD PRESSURE DECREASED [None]
  - BLOOD PRESSURE INADEQUATELY CONTROLLED [None]
  - BLOOD PRESSURE INCREASED [None]
  - CYSTITIS [None]
  - WRONG DRUG ADMINISTERED [None]
